FAERS Safety Report 22048338 (Version 1)
Quarter: 2023Q1

REPORT INFORMATION
  Report Type: Spontaneous
  Country: PT (occurrence: PT)
  Receive Date: 20230301
  Receipt Date: 20230301
  Transmission Date: 20230417
  Serious: Yes (Other)
  Sender: FDA-Public Use
  Company Number: PT-Accord-302450

PATIENT
  Age: 64 Year
  Sex: Male

DRUGS (1)
  1. FLUOROURACIL [Suspect]
     Active Substance: FLUOROURACIL
     Indication: Malignant neoplasm of conjunctiva
     Dosage: 1% TOPICAL SOLUTION, TOTAL, THREE ONE-WEEK CYCLES COMPLETED
     Dates: start: 202203, end: 2022

REACTIONS (2)
  - Punctate keratitis [Recovered/Resolved]
  - Corneal erosion [Recovered/Resolved]
